FAERS Safety Report 19916680 (Version 1)
Quarter: 2021Q4

REPORT INFORMATION
  Report Type: Spontaneous
  Country: US (occurrence: US)
  Receive Date: 20211005
  Receipt Date: 20211005
  Transmission Date: 20220303
  Serious: No
  Sender: FDA-Public Use
  Company Number: US-CELLTRION INC.-2021US006108

PATIENT

DRUGS (1)
  1. INFLECTRA [Suspect]
     Active Substance: INFLIXIMAB-DYYB
     Indication: Crohn^s disease
     Dosage: 666 MG, EVERY 6 WEEKS
     Route: 065
     Dates: start: 20200909

REACTIONS (5)
  - Product distribution issue [Recovered/Resolved]
  - Therapy interrupted [Recovered/Resolved]
  - Treatment delayed [Unknown]
  - Overdose [Unknown]
  - Off label use [Unknown]

NARRATIVE: CASE EVENT DATE: 20210426
